FAERS Safety Report 9175151 (Version 1)
Quarter: 2013Q1

REPORT INFORMATION
  Report Type: Spontaneous
  Country: US (occurrence: US)
  Receive Date: 20130320
  Receipt Date: 20130320
  Transmission Date: 20140127
  Serious: No
  Sender: FDA-Public Use
  Company Number: US-BAYER-2013-034872

PATIENT
  Age: 89 Year
  Sex: Female
  Weight: 57 kg

DRUGS (6)
  1. ALEVE CAPLET/TABLET,MIDOL EXTENDED RELIEF CAPLET [Suspect]
     Indication: MYALGIA
     Dosage: 2 DF, BID
     Route: 048
     Dates: start: 2012
  2. BAYER ASPIRIN REGIMEN ADULT LOW STRENGTH [Suspect]
  3. ARIDEX [Concomitant]
  4. METRPOL [Concomitant]
  5. PRILOSEC [Concomitant]
  6. SIVASTIN [Concomitant]

REACTIONS (2)
  - Incorrect drug administration duration [Not Recovered/Not Resolved]
  - Expired drug administered [None]
